FAERS Safety Report 8759300 (Version 2)
Quarter: 2012Q4

REPORT INFORMATION
  Report Type: Report from Study
  Country: CA (occurrence: CA)
  Receive Date: 20120829
  Receipt Date: 20120928
  Transmission Date: 20130627
  Serious: Yes (Other)
  Sender: FDA-Public Use
  Company Number: CA-ABBOTT-12P-028-0972689-00

PATIENT
  Sex: Female

DRUGS (4)
  1. HUMIRA 40 MG/0.8 ML PEN [Suspect]
     Indication: ANKYLOSING SPONDYLITIS
     Route: 058
  2. CELEBREX [Concomitant]
     Indication: ANTIINFLAMMATORY THERAPY
     Route: 048
     Dates: start: 201201
  3. LEVOTHYROXINE [Concomitant]
     Indication: THYROID DISORDER
     Route: 048
     Dates: start: 2012
  4. MORPHINE [Concomitant]
     Indication: ANALGESIC THERAPY
     Route: 048
     Dates: start: 2012

REACTIONS (9)
  - Liver injury [Recovered/Resolved]
  - Hepatic enzyme increased [Recovered/Resolved]
  - Thyroid function test abnormal [Not Recovered/Not Resolved]
  - Bedridden [Recovered/Resolved]
  - Pain [Not Recovered/Not Resolved]
  - Depression [Not Recovered/Not Resolved]
  - Impaired healing [Not Recovered/Not Resolved]
  - Type 2 diabetes mellitus [Not Recovered/Not Resolved]
  - Hepatomegaly [Unknown]
